FAERS Safety Report 8130911-5 (Version None)
Quarter: 2012Q1

REPORT INFORMATION
  Report Type: 
  Country: None (occurrence: None)
  Receive Date: 20120213
  Receipt Date: 20120207
  Transmission Date: 20120608
  Serious: No
  Sender: FDA-Public Use
  Company Number: US-PFIZER INC-2012023425

PATIENT
  Sex: Female
  Weight: 63 kg

DRUGS (4)
  1. LIPITOR [Concomitant]
     Indication: BLOOD CHOLESTEROL INCREASED
     Dosage: 10 MG, 1X/DAY
  2. COUMADIN [Concomitant]
     Indication: THROMBOSIS
     Dosage: 5MG ON MONDAY AND 2.5MG REST OF WEEK
  3. FLECTOR [Suspect]
     Indication: PAIN
     Dosage: UNK, 1X/DAY
     Route: 048
     Dates: start: 20120120, end: 20120123
  4. BENICAR [Concomitant]
     Indication: HYPERTENSION
     Dosage: UNK, 1X/DAY

REACTIONS (5)
  - MYALGIA [None]
  - PAIN [None]
  - SOMNOLENCE [None]
  - DRUG INEFFECTIVE [None]
  - FEELING ABNORMAL [None]
